FAERS Safety Report 7907346-0 (Version None)
Quarter: 2011Q4

REPORT INFORMATION
  Report Type: 
  Country: None (occurrence: None)
  Receive Date: 20111110
  Receipt Date: 20111102
  Transmission Date: 20120403
  Serious: Yes (Other)
  Sender: FDA-Public Use
  Company Number: DK-GLAXOSMITHKLINE-B0761506A

PATIENT
  Sex: Female

DRUGS (7)
  1. MEROPENEM [Suspect]
     Indication: ANTIBIOTIC THERAPY
     Dates: start: 20080501
  2. KEFLEX [Suspect]
     Indication: ANTIBIOTIC THERAPY
     Dates: start: 20080501
  3. GENTAMICIN [Suspect]
     Indication: ANTIBIOTIC THERAPY
     Dates: start: 20080501
  4. CLINDAMYCIN [Suspect]
     Indication: ANTIBIOTIC THERAPY
     Dates: start: 20080501
  5. ZINACEF [Suspect]
     Indication: ANTIBIOTIC THERAPY
     Route: 042
     Dates: start: 20080101
  6. DICLOXACILLIN [Suspect]
     Indication: ANTIBIOTIC THERAPY
     Dates: start: 20080101
  7. UNKNOWN MEDICATION [Concomitant]
     Indication: HYPERTENSION

REACTIONS (6)
  - WOUND INFECTION STAPHYLOCOCCAL [None]
  - SKIN NECROSIS [None]
  - LEUKOCYTOCLASTIC VASCULITIS [None]
  - SKIN DISCOLOURATION [None]
  - RASH [None]
  - BLISTER [None]
